FAERS Safety Report 20819086 (Version 1)
Quarter: 2022Q2

REPORT INFORMATION
  Report Type: Spontaneous
  Country: US (occurrence: US)
  Receive Date: 20220512
  Receipt Date: 20220512
  Transmission Date: 20220721
  Serious: Yes (Hospitalization)
  Sender: FDA-Public Use
  Company Number: US-CHIESI-2022CHF02203

PATIENT
  Age: 20 Year
  Sex: Female

DRUGS (13)
  1. BETHKIS [Suspect]
     Active Substance: TOBRAMYCIN
     Indication: Respiratory failure
     Dosage: 300 MILLIGRAM, BID
     Route: 055
     Dates: start: 201911
  2. BETHKIS [Suspect]
     Active Substance: TOBRAMYCIN
     Indication: Hypoxia
  3. BETHKIS [Suspect]
     Active Substance: TOBRAMYCIN
     Indication: Hypercapnia
  4. BETHKIS [Suspect]
     Active Substance: TOBRAMYCIN
     Indication: Pneumonia bacterial
  5. BETHKIS [Suspect]
     Active Substance: TOBRAMYCIN
     Indication: Anaemia
  6. BETHKIS [Suspect]
     Active Substance: TOBRAMYCIN
     Indication: Atelectasis
  7. BETHKIS [Suspect]
     Active Substance: TOBRAMYCIN
     Indication: Off label use
  8. CAYSTON [Concomitant]
     Active Substance: AZTREONAM
     Indication: Respiratory failure
     Dosage: 1 DOSAGE FORM, TID
  9. CAYSTON [Concomitant]
     Active Substance: AZTREONAM
     Indication: Hypoxia
  10. CAYSTON [Concomitant]
     Active Substance: AZTREONAM
     Indication: Hypercapnia
  11. CAYSTON [Concomitant]
     Active Substance: AZTREONAM
     Indication: Pneumonia bacterial
  12. CAYSTON [Concomitant]
     Active Substance: AZTREONAM
     Indication: Atelectasis
  13. CAYSTON [Concomitant]
     Active Substance: AZTREONAM
     Indication: Anaemia

REACTIONS (2)
  - Seizure [Recovered/Resolved]
  - Off label use [Not Recovered/Not Resolved]

NARRATIVE: CASE EVENT DATE: 20191101
